FAERS Safety Report 4654376-0 (Version None)
Quarter: 2005Q2

REPORT INFORMATION
  Report Type: 
  Country: None (occurrence: None)
  Receive Date: 20050504
  Receipt Date: 20050426
  Transmission Date: 20051028
  Serious: Yes (Other)
  Sender: FDA-Public Use
  Company Number: 2005065285

PATIENT
  Age: 84 Year
  Sex: Female
  Weight: 68.0396 kg

DRUGS (1)
  1. XALATAN [Suspect]
     Indication: GLAUCOMA
     Dosage: 2 DROP (1 IN 1 D) OPHTHALMIC
     Route: 047
     Dates: start: 20040601

REACTIONS (6)
  - CATARACT OPERATION [None]
  - CHROMATURIA [None]
  - CONDITION AGGRAVATED [None]
  - FAECES DISCOLOURED [None]
  - NAIL DISCOLOURATION [None]
  - SURGICAL PROCEDURE REPEATED [None]
